FAERS Safety Report 8403543-9 (Version None)
Quarter: 2012Q2

REPORT INFORMATION
  Report Type: 
  Country: None (occurrence: None)
  Receive Date: 20120601
  Receipt Date: 20120522
  Transmission Date: 20120825
  Serious: Yes (Death, Other)
  Sender: FDA-Public Use
  Company Number: JP-JNJFOC-20090200282

PATIENT
  Sex: Female
  Weight: 69 kg

DRUGS (19)
  1. MYSER [Concomitant]
     Indication: PSORIASIS
     Route: 061
  2. DOXAZOSIN MESYLATE [Concomitant]
     Indication: HYPERTENSION
     Route: 048
     Dates: start: 20070829
  3. ALENDRONATE SODIUM [Concomitant]
     Indication: OSTEOPOROSIS PROPHYLAXIS
     Route: 048
     Dates: start: 20070828
  4. REMICADE [Suspect]
     Route: 042
     Dates: start: 20070419
  5. REMICADE [Suspect]
     Route: 042
     Dates: start: 20061204
  6. CALSLOT [Concomitant]
     Indication: HYPERTENSION
     Route: 048
     Dates: start: 20070810
  7. ALLOID G [Concomitant]
     Indication: GASTRITIS
     Route: 048
     Dates: start: 20070808
  8. LOCOID [Concomitant]
     Indication: PSORIASIS
     Route: 061
  9. NEORAL [Concomitant]
  10. REMICADE [Suspect]
     Route: 042
     Dates: start: 20070104
  11. REMICADE [Suspect]
     Route: 042
     Dates: start: 20061120
  12. WHITE PETROLATUM [Concomitant]
     Indication: PSORIASIS
     Route: 061
  13. URSO 250 [Concomitant]
     Indication: ALCOHOLIC LIVER DISEASE
     Route: 048
     Dates: start: 20070825
  14. LIDOMEX [Concomitant]
     Indication: PSORIASIS
     Route: 061
  15. EMPECID [Concomitant]
     Indication: TINEA INFECTION
     Route: 061
     Dates: start: 20070801
  16. REMICADE [Suspect]
     Route: 042
     Dates: start: 20070221
  17. SUCRALFATE [Concomitant]
     Indication: GASTRITIS
     Route: 048
     Dates: start: 20070824
  18. REMICADE [Suspect]
     Indication: PSORIASIS
     Route: 042
     Dates: start: 20070621
  19. ALLOPURINOL [Concomitant]
     Indication: HYPERURICAEMIA
     Route: 048
     Dates: start: 20070828

REACTIONS (2)
  - DEATH [None]
  - KAPOSI'S SARCOMA [None]
